FAERS Safety Report 8447786-7 (Version None)
Quarter: 2012Q2

REPORT INFORMATION
  Report Type: 
  Country: None (occurrence: None)
  Receive Date: 20120612
  Receipt Date: 20120529
  Transmission Date: 20120825
  Serious: Yes (Hospitalization, Other)
  Sender: FDA-Public Use
  Company Number: CIP11002243

PATIENT
  Age: 58 Year
  Sex: Female

DRUGS (63)
  1. PREVIDENT (SODIUM FLUORIDE) [Concomitant]
  2. PRECOSE [Concomitant]
  3. ORPHENADRINE CITRATE [Concomitant]
  4. FERGON [Concomitant]
  5. VITAMIN B (VITAMIN B COMPLEX) [Concomitant]
  6. RECLAST [Suspect]
     Indication: OSTEOPOROSIS
     Dates: start: 20101101, end: 20111129
  7. APAP W/CODEINE (CODEINE, PARACETAMOL) [Concomitant]
  8. CIPROFLOXACIN [Concomitant]
  9. BUTALBITAL/APAP (BUTALBITAL, PARACETAMOL) [Concomitant]
  10. ACIPHEX [Concomitant]
  11. CLARINEX [Concomitant]
  12. VAGIFEM [Concomitant]
  13. BENZTROPINE MESYLATE [Concomitant]
  14. CLONAZEPAM [Concomitant]
  15. NITROFURANTOIN [Concomitant]
  16. FOLPLEX (CYANOCOBALAMIN, FOLIC ACID, PYRIDOXINE HYDROCHLORIDE) [Concomitant]
  17. MIRTAZAPINE [Concomitant]
  18. CARAFATE [Concomitant]
  19. ASCORBIC ACID [Concomitant]
  20. EXCEDRIN MIGRAINE (ACETYLSALICYLIC ACID, CAFFEINE, PARACETAMOL) [Concomitant]
  21. MICARDIS [Interacting]
  22. QUININE SULFATE [Concomitant]
  23. SONATA [Concomitant]
  24. TRIAMCINOLONE [Concomitant]
  25. DOXEPINE (DOXEPIN) [Concomitant]
  26. DIAZEPAM [Concomitant]
  27. CHLORPROMAZINE [Concomitant]
  28. NYSTATIN W/TRIAMCINOLONE (NYSTATIN, TRIAMCINOLONE ACETONIDE) [Concomitant]
  29. PREMARIN [Concomitant]
  30. VITAMIN B12 [Concomitant]
  31. CHLORAL HYDRATE (CHLORAL HYDRATE) [Concomitant]
  32. TOPAMAX [Concomitant]
  33. PREVALITE [Concomitant]
  34. GABITRIL [Concomitant]
  35. PAROXETINE HCL [Concomitant]
  36. ENABLEX [Concomitant]
  37. TERAZOSIN HCL [Concomitant]
  38. MECLIZINE [Concomitant]
  39. CIMETIDINE [Concomitant]
  40. CARISOPRODOL [Concomitant]
  41. HYDROXYZINE PAMOATE [Concomitant]
  42. MULTI-VITAMINS [Concomitant]
  43. HALOPERIDOL LACTATE [Concomitant]
  44. AMOXICILLIN [Concomitant]
  45. SYNTHROID [Concomitant]
  46. SEROQUEL [Concomitant]
  47. LUNESTA [Concomitant]
  48. PYRIDIUM (PHENAZOPYRIDINE HYDROCHLORIDE) [Concomitant]
  49. NALTREXONE HYDROCHLORIDE [Concomitant]
  50. FEXOFENADINE HCL [Concomitant]
  51. ACTONEL [Suspect]
     Indication: OSTEOPOROSIS
     Dosage: 35 MG ONCE WEEKLY, ORAL
     Route: 048
     Dates: start: 20041206, end: 20060313
  52. BONIVA [Suspect]
     Indication: OSTEOPOROSIS
     Dosage: 150 MG ONCE MONTHLY, ORAL
     Route: 048
     Dates: start: 20060306, end: 20091130
  53. FOSAMAX [Suspect]
     Indication: OSTEOPOROSIS
     Dosage: 70 MG SINGLE DOSE, ORAL
     Route: 048
     Dates: start: 20050929, end: 20050929
  54. ANTIPYRINE W/BENZOCAINE (BENZOCAINE, PHENAZONE) [Concomitant]
  55. NORVASC [Concomitant]
  56. ZYRTEC [Concomitant]
  57. ZOMIG [Concomitant]
  58. AXERT [Concomitant]
  59. ALLEGRA-D 12 HOUR [Concomitant]
  60. CYCLOBENZAPRINE [Concomitant]
  61. ZOFRAN [Concomitant]
  62. CYMBALTA (DULOXEINTE HYDROCHLORIDE) [Concomitant]
  63. MUPIROCIN [Concomitant]

REACTIONS (22)
  - PAIN [None]
  - MASS [None]
  - FEMUR FRACTURE [None]
  - PATHOLOGICAL FRACTURE [None]
  - HIP DEFORMITY [None]
  - MUSCLE RUPTURE [None]
  - STAPHYLOCOCCAL INFECTION [None]
  - NEOPLASM MALIGNANT [None]
  - FRACTURE DISPLACEMENT [None]
  - GROIN PAIN [None]
  - MUSCLE HAEMORRHAGE [None]
  - MIGRAINE [None]
  - LOW TURNOVER OSTEOPATHY [None]
  - MOBILITY DECREASED [None]
  - FALL [None]
  - OSTEOPOROTIC FRACTURE [None]
  - ARTHRALGIA [None]
  - STRESS FRACTURE [None]
  - FRACTURE NONUNION [None]
  - BONE DISORDER [None]
  - MULTIPLE FRACTURES [None]
  - BONE GRAFT [None]
